FAERS Safety Report 18136229 (Version 3)
Quarter: 2020Q4

REPORT INFORMATION
  Report Type: Report from Study
  Country: FR (occurrence: FR)
  Receive Date: 20200811
  Receipt Date: 20201214
  Transmission Date: 20210113
  Serious: Yes (Other)
  Sender: FDA-Public Use
  Company Number: FR-JNJFOC-20200747529

PATIENT
  Age: 50 Year
  Sex: Female

DRUGS (2)
  1. SPRAVATO [Suspect]
     Active Substance: ESKETAMINE
     Indication: DEPRESSION
  2. SPRAVATO [Suspect]
     Active Substance: ESKETAMINE
     Dates: start: 20200518, end: 20200518

REACTIONS (5)
  - Dissociation [Recovered/Resolved]
  - Illusion [Recovered/Resolved]
  - Sedation [Recovered/Resolved]
  - Hypoaesthesia [Recovered/Resolved]
  - Hallucination [Recovered/Resolved]

NARRATIVE: CASE EVENT DATE: 20200511
